FAERS Safety Report 6196512-3 (Version None)
Quarter: 2009Q2

REPORT INFORMATION
  Report Type: 
  Country: None (occurrence: None)
  Receive Date: 20090520
  Receipt Date: 20080509
  Transmission Date: 20091009
  Serious: No
  Sender: FDA-Public Use
  Company Number: US-ABBOTT-08P-163-0451262-00

PATIENT
  Sex: Male
  Weight: 77 kg

DRUGS (11)
  1. ZEMPLAR [Suspect]
     Indication: DIALYSIS
     Route: 042
     Dates: start: 20080101, end: 20080401
  2. EPOETIN ALFA [Concomitant]
     Indication: ANAEMIA
     Route: 042
     Dates: start: 20020509, end: 20080418
  3. SYVEK PATCH [Concomitant]
     Indication: DRUG USE FOR UNKNOWN INDICATION
     Dates: start: 20071205
  4. BENEFUR [Concomitant]
     Indication: BLOOD IRON
     Route: 042
     Dates: start: 20020509, end: 20080423
  5. BENEFUR [Concomitant]
     Indication: ANAEMIA
  6. ATORVASTATIN CALCIUM [Concomitant]
     Indication: BLOOD CHOLESTEROL
     Route: 048
     Dates: start: 20060718
  7. DIAVITE - RENAL MVI [Concomitant]
     Indication: VITAMIN SUPPLEMENTATION
     Dates: start: 20031114
  8. SINSIPAR [Concomitant]
     Indication: BLOOD PARATHYROID HORMONE INCREASED
     Route: 048
     Dates: start: 20070724
  9. GABAPENTIN [Concomitant]
     Indication: NEUROPATHY PERIPHERAL
     Route: 048
     Dates: start: 20080307
  10. LISINOPRIL [Concomitant]
     Indication: HYPERTENSION
     Route: 048
     Dates: start: 20080114
  11. SEVELAMER [Concomitant]
     Indication: BLOOD PHOSPHORUS INCREASED
     Route: 048
     Dates: start: 20070301

REACTIONS (5)
  - ACNE [None]
  - BLOOD BLISTER [None]
  - BURNING SENSATION [None]
  - HYPERKERATOSIS [None]
  - PRURITUS [None]
